FAERS Safety Report 6835688-9 (Version None)
Quarter: 2010Q3

REPORT INFORMATION
  Report Type: 
  Country: None (occurrence: None)
  Receive Date: 20100713
  Receipt Date: 20100709
  Transmission Date: 20110219
  Serious: Yes (Death)
  Sender: FDA-Public Use
  Company Number: SE-JNJFOC-20100702072

PATIENT
  Sex: Female

DRUGS (5)
  1. TOPAMAX [Suspect]
     Indication: GRAND MAL CONVULSION
     Route: 048
  2. TOPAMAX [Suspect]
     Route: 048
  3. LAMOTRIGINE [Suspect]
     Indication: GRAND MAL CONVULSION
     Route: 048
  4. LAMOTRIGINE [Suspect]
     Route: 048
  5. SERTRALINE HCL [Concomitant]
     Route: 065

REACTIONS (2)
  - EPILEPSY [None]
  - SUDDEN DEATH [None]
